FAERS Safety Report 9249823 (Version 3)
Quarter: 2013Q3

REPORT INFORMATION
  Report Type: Report from Study
  Country: TW (occurrence: TW)
  Receive Date: 20130423
  Receipt Date: 20130731
  Transmission Date: 20140515
  Serious: Yes (Hospitalization)
  Sender: FDA-Public Use
  Company Number: TW-GILEAD-2013-0073770

PATIENT
  Age: 35 Year
  Sex: Female

DRUGS (2)
  1. TENOFOVIR DISOPROXIL FUMARATE [Suspect]
     Indication: CHRONIC HEPATITIS B
     Dosage: 300 MG, QD
     Route: 048
     Dates: start: 20130129, end: 20130227
  2. PEGINTERFERON ALFA-2A [Suspect]
     Indication: CHRONIC HEPATITIS B
     Dosage: 180 ?G, Q1WK
     Route: 058
     Dates: start: 20130129, end: 20130227

REACTIONS (2)
  - Myelopathy [Unknown]
  - Neuropathy peripheral [Unknown]
